FAERS Safety Report 19981931 (Version 2)
Quarter: 2021Q4

REPORT INFORMATION
  Report Type: Report from Study
  Country: US (occurrence: US)
  Receive Date: 20211022
  Receipt Date: 20211111
  Transmission Date: 20220303
  Serious: No
  Sender: FDA-Public Use
  Company Number: US-NOVARTISTESTPH-NVSC2021US241394

PATIENT
  Age: 69 Year
  Sex: Male

DRUGS (2)
  1. ENTRESTO [Suspect]
     Active Substance: SACUBITRIL\VALSARTAN
     Indication: Cardiac failure
     Dosage: 50 MG, BID (24/26 MG)
     Route: 048
     Dates: start: 20210924
  2. BRILINTA [Concomitant]
     Active Substance: TICAGRELOR
     Indication: Product used for unknown indication
     Dosage: UNK
     Route: 065
     Dates: start: 20211018

REACTIONS (4)
  - Atrioventricular block [Not Recovered/Not Resolved]
  - Dyspnoea [Not Recovered/Not Resolved]
  - Poor quality sleep [Recovering/Resolving]
  - Insomnia [Not Recovered/Not Resolved]

NARRATIVE: CASE EVENT DATE: 20211018
